FAERS Safety Report 7606121-4 (Version None)
Quarter: 2011Q3

REPORT INFORMATION
  Report Type: 
  Country: None (occurrence: None)
  Receive Date: 20110705
  Receipt Date: 20110620
  Transmission Date: 20111222
  Serious: Yes (Hospitalization, Other)
  Sender: FDA-Public Use
  Company Number: AUR-APL-2011-03276

PATIENT
  Age: 18 Year
  Sex: Female

DRUGS (7)
  1. SUMATRIPTAN SUCCINATE [Suspect]
     Indication: PRODUCT USED FOR UNKNOWN INDICATION
  2. PREDNISONE [Suspect]
     Indication: TUBULOINTERSTITIAL NEPHRITIS
     Dosage: (60 MG, 1 D),
  3. CYCLOPHOSPHAMIDE [Suspect]
     Indication: TUBULOINTERSTITIAL NEPHRITIS
     Dosage: (100 MG, 1 D), (50 MG, 1 D)
  4. CYCLOPHOSPHAMIDE [Suspect]
     Indication: TUBULOINTERSTITIAL NEPHRITIS
     Dosage: (100 MG, 1 D), (50 MG, 1 D)
  5. PROPRANOLOL [Suspect]
     Indication: PRODUCT USED FOR UNKNOWN INDICATION
  6. SERTRALINE HYDROCHLORIDE [Suspect]
     Indication: PRODUCT USED FOR UNKNOWN INDICATION
  7. ADALIMUMAB (ADALIMUMAB) [Suspect]
     Indication: CROHN'S DISEASE
     Dosage: (FORTNIGHTLY INJECTIONS)

REACTIONS (7)
  - PAIN IN EXTREMITY [None]
  - ALOPECIA [None]
  - KIDNEY FIBROSIS [None]
  - RENAL TUBULAR ATROPHY [None]
  - ABDOMINAL DISTENSION [None]
  - RENAL FAILURE [None]
  - TUBULOINTERSTITIAL NEPHRITIS [None]
